FAERS Safety Report 20706316 (Version 3)
Quarter: 2022Q3

REPORT INFORMATION
  Report Type: Spontaneous
  Country: CA (occurrence: CA)
  Receive Date: 20220413
  Receipt Date: 20220912
  Transmission Date: 20221026
  Serious: Yes (Other)
  Sender: FDA-Public Use
  Company Number: CA-PFIZER INC-202200530768

PATIENT
  Age: 54 Year
  Sex: Female

DRUGS (5)
  1. XELJANZ [Suspect]
     Active Substance: TOFACITINIB CITRATE
     Indication: Rheumatoid arthritis
     Dosage: 5 MG, 2X/DAY
     Route: 048
     Dates: start: 20200806
  2. CORTISONE [Concomitant]
     Active Substance: CORTISONE
     Dosage: 20 MG, TAPERING DOSAGE
     Route: 065
  3. LYRICA [Concomitant]
     Active Substance: PREGABALIN
     Indication: Pain
     Dosage: 50 MG, 1X/DAY,BEFORE BEDTIME
     Route: 065
  4. METHOTREXATE [Concomitant]
     Active Substance: METHOTREXATE
     Dosage: 1 DF,7.5 MG
     Route: 065
  5. NAPROSYN [Concomitant]
     Active Substance: NAPROXEN
     Dosage: 500 MG, 2X/DAY
     Route: 065

REACTIONS (4)
  - Clostridium difficile infection [Unknown]
  - Tooth disorder [Recovered/Resolved]
  - C-reactive protein increased [Not Recovered/Not Resolved]
  - Condition aggravated [Not Recovered/Not Resolved]

NARRATIVE: CASE EVENT DATE: 20220106
